FAERS Safety Report 9105731 (Version 3)
Quarter: 2015Q1

REPORT INFORMATION
  Report Type: Report from Study
  Country: JP (occurrence: JP)
  Receive Date: 20130221
  Receipt Date: 20150326
  Transmission Date: 20150721
  Serious: Yes (Death, Other)
  Sender: FDA-Public Use
  Company Number: JP-GLAXOSMITHKLINE-B0853448A

PATIENT
  Age: 73 Year
  Sex: Female
  Weight: 40 kg

DRUGS (37)
  1. ARASENA-A [Concomitant]
     Active Substance: VIDARABINE
     Indication: PROPHYLAXIS
     Route: 062
     Dates: start: 20121214, end: 20130122
  2. TRANSAMIN [Concomitant]
     Active Substance: TRANEXAMIC ACID
     Route: 048
     Dates: start: 20121217, end: 20130122
  3. SULFAMETHOXAZOLE AND TRIMETHOPRIM [Concomitant]
     Active Substance: SULFAMETHOXAZOLE\TRIMETHOPRIM
     Indication: ANTIFUNGAL PROPHYLAXIS
     Route: 048
     Dates: start: 20121206, end: 20121212
  4. MUCOSTA [Concomitant]
     Active Substance: REBAMIPIDE
     Indication: PROPHYLAXIS
     Route: 048
     Dates: start: 20120817, end: 20121213
  5. VITAMEDIN [Concomitant]
     Active Substance: CYANOCOBALAMIN\PYRIDOXINE HYDROCHLORIDE\THIAMINE
     Route: 042
     Dates: start: 20121208, end: 20121213
  6. HYPEN [Concomitant]
     Active Substance: ETODOLAC
     Route: 048
     Dates: start: 20121209, end: 20121212
  7. FLORID [Concomitant]
     Active Substance: MICONAZOLE
     Route: 048
     Dates: start: 20121217, end: 20121228
  8. METOLATE [Concomitant]
     Active Substance: METHOTREXATE
     Route: 048
     Dates: start: 20120803, end: 20121203
  9. PREDNISOLONE. [Concomitant]
     Active Substance: PREDNISOLONE
     Dosage: 40 MG, QD
     Route: 048
     Dates: start: 20121214, end: 20121219
  10. SOLITA-T NO.4 [Concomitant]
     Route: 041
     Dates: start: 20121212, end: 20121213
  11. PREDNISOLONE. [Concomitant]
     Active Substance: PREDNISOLONE
     Indication: INTERSTITIAL LUNG DISEASE
     Dosage: 5 MG, QD
     Route: 048
     Dates: start: 20120817, end: 20121213
  12. PREDNISOLONE. [Concomitant]
     Active Substance: PREDNISOLONE
     Dosage: 25 MG, QD
     Route: 048
     Dates: start: 20121227, end: 20130109
  13. MUCOFILIN [Concomitant]
     Route: 055
     Dates: start: 20121207, end: 20121213
  14. VITAMEDIN [Concomitant]
     Active Substance: CYANOCOBALAMIN\PYRIDOXINE HYDROCHLORIDE\THIAMINE
     Route: 048
     Dates: start: 20121209, end: 20130122
  15. DIART [Concomitant]
     Active Substance: AZOSEMIDE
     Route: 048
     Dates: start: 20121211, end: 20121219
  16. CALONAL [Concomitant]
     Active Substance: ACETAMINOPHEN
     Route: 048
     Dates: start: 20121212, end: 20130122
  17. PANTOSIN [Concomitant]
     Active Substance: PANTETHINE
     Route: 048
     Dates: start: 20121212, end: 20130122
  18. GEBEN [Concomitant]
     Route: 062
     Dates: start: 20121212, end: 20130122
  19. VFEND [Concomitant]
     Active Substance: VORICONAZOLE
     Route: 048
     Dates: start: 20121227, end: 20130122
  20. ATOVAQUONE. [Suspect]
     Active Substance: ATOVAQUONE
     Indication: ANTIFUNGAL PROPHYLAXIS
     Dosage: 1500 MG, QD
     Route: 048
     Dates: start: 20121202, end: 20130123
  21. PREDNISOLONE. [Concomitant]
     Active Substance: PREDNISOLONE
     Dosage: 30 MG, QD
     Route: 048
     Dates: start: 20121220, end: 20121226
  22. FOLIAMIN [Concomitant]
     Active Substance: FOLIC ACID
     Route: 048
     Dates: start: 20121209, end: 20130122
  23. FAMOTIDINE D [Concomitant]
     Active Substance: FAMOTIDINE
     Indication: GASTRITIS PROPHYLAXIS
     Route: 048
     Dates: start: 20121214, end: 20130122
  24. HIRUDOID [Concomitant]
     Active Substance: GLYCOSAMINOGLYCANS
     Indication: DRY SKIN PROPHYLAXIS
     Route: 062
     Dates: start: 20130108, end: 20130122
  25. MUCOSTA [Concomitant]
     Active Substance: REBAMIPIDE
     Route: 048
     Dates: start: 20121231, end: 20130117
  26. LOXONIN [Concomitant]
     Active Substance: LOXOPROFEN SODIUM
     Route: 048
     Dates: start: 20120817, end: 20121213
  27. LANSOPRAZOLE-OD [Concomitant]
     Active Substance: LANSOPRAZOLE
     Indication: GASTRITIS PROPHYLAXIS
     Route: 048
     Dates: start: 20121214, end: 20121214
  28. UNKNOWNDRUG [Concomitant]
     Active Substance: UNSPECIFIED INGREDIENT
     Route: 065
  29. SOL-MELCORT [Concomitant]
     Active Substance: METHYLPREDNISOLONE SODIUM SUCCINATE
     Indication: INTERSTITIAL LUNG DISEASE
     Route: 042
     Dates: start: 20121205, end: 20121208
  30. SOL-MELCORT [Concomitant]
     Active Substance: METHYLPREDNISOLONE SODIUM SUCCINATE
     Route: 042
     Dates: start: 20121209
  31. FLUCONAZOLE. [Concomitant]
     Active Substance: FLUCONAZOLE
     Route: 048
     Dates: start: 20121209, end: 20121215
  32. PREDNISOLONE. [Concomitant]
     Active Substance: PREDNISOLONE
     Dosage: 20 MG, QD
     Route: 048
     Dates: start: 20130110, end: 20130122
  33. MOBIC [Concomitant]
     Active Substance: MELOXICAM
     Route: 048
     Dates: start: 20121210, end: 20121219
  34. FLAVITAN [Concomitant]
     Active Substance: FLAVIN ADENINE DINUCLEOTIDE
     Route: 048
     Dates: start: 20121219, end: 20130122
  35. ACUATIM [Concomitant]
     Active Substance: NADIFLOXACIN
     Route: 062
     Dates: start: 20130109, end: 20130122
  36. LAXOBERON [Concomitant]
     Active Substance: SODIUM PICOSULFATE
     Route: 048
     Dates: start: 20121213, end: 20121213
  37. NEOSTELIN GREEN [Concomitant]
     Route: 002
     Dates: start: 20121207, end: 20130122

REACTIONS (2)
  - Myocardial infarction [Fatal]
  - White blood cell count increased [Not Recovered/Not Resolved]

NARRATIVE: CASE EVENT DATE: 20121219
